FAERS Safety Report 6111635-2 (Version None)
Quarter: 2009Q1

REPORT INFORMATION
  Report Type: 
  Country: None (occurrence: None)
  Receive Date: 20090311
  Receipt Date: 20090226
  Transmission Date: 20090719
  Serious: Yes (Other)
  Sender: FDA-Public Use
  Company Number: JP-PFIZER INC-2009175494

PATIENT

DRUGS (3)
  1. NORVASC [Suspect]
     Indication: HYPERTENSION
     Dosage: UNK
     Route: 048
     Dates: start: 20081112
  2. URSO 250 [Concomitant]
     Dosage: UNK
     Route: 048
     Dates: start: 20080101
  3. PROHEPARUM [Concomitant]
     Dosage: UNK
     Route: 048
     Dates: start: 20080101

REACTIONS (1)
  - BIRTH MARK [None]
